FAERS Safety Report 18955887 (Version 1)
Quarter: 2021Q1

REPORT INFORMATION
  Report Type: Spontaneous
  Country: US (occurrence: US)
  Receive Date: 20210302
  Receipt Date: 20210302
  Transmission Date: 20210420
  Serious: No
  Sender: FDA-Public Use
  Company Number: US-ASTRAZENECA-2021A084353

PATIENT
  Sex: Female

DRUGS (1)
  1. SYMBICORT [Suspect]
     Active Substance: BUDESONIDE\FORMOTEROL FUMARATE DIHYDRATE
     Dosage: ONCE AT NIGHT WHEN SHE NEEDS IT OR WHEN SHE IS HAVING WHEEZING PROBLEM
     Route: 055

REACTIONS (2)
  - Intentional device misuse [Unknown]
  - Wheezing [Unknown]
